FAERS Safety Report 7222617-1 (Version None)
Quarter: 2011Q1

REPORT INFORMATION
  Report Type: 
  Country: None (occurrence: None)
  Receive Date: 20110112
  Receipt Date: 20110110
  Transmission Date: 20110831
  Serious: No
  Sender: FDA-Public Use
  Company Number: US-PFIZER INC-2011006048

PATIENT
  Age: 53 Year
  Sex: Male

DRUGS (2)
  1. LIPITOR [Suspect]
     Dosage: 10 MG, UNK
  2. NORTRIPTYLINE [Concomitant]
     Dosage: 10 MG, UNK

REACTIONS (1)
  - HEADACHE [None]
